FAERS Safety Report 13701356 (Version 1)
Quarter: 2017Q2

REPORT INFORMATION
  Report Type: Spontaneous
  Country: US (occurrence: US)
  Receive Date: 20170628
  Receipt Date: 20170628
  Transmission Date: 20170830
  Serious: No
  Sender: FDA-Public Use
  Company Number: None

PATIENT
  Age: 72 Year
  Sex: Female

DRUGS (1)
  1. IBANDRONATE KIT 3MG/3ML PFS [Suspect]
     Active Substance: IBANDRONATE SODIUM

REACTIONS (1)
  - Arthralgia [None]

NARRATIVE: CASE EVENT DATE: 20170628
